FAERS Safety Report 11990661 (Version 1)
Quarter: 2016Q1

REPORT INFORMATION
  Report Type: Spontaneous
  Country: US (occurrence: US)
  Receive Date: 20160202
  Receipt Date: 20160202
  Transmission Date: 20160526
  Serious: Yes (Other)
  Sender: FDA-Public Use
  Company Number: US-BAYER-2016-017644

PATIENT
  Age: 15 Year
  Sex: Male
  Weight: 89.34 kg

DRUGS (2)
  1. AFRIN ORIGINAL [Suspect]
     Active Substance: OXYMETAZOLINE HYDROCHLORIDE
     Indication: DYSPNOEA
     Dosage: 1 DF, PRN
     Route: 045
     Dates: start: 1982
  2. AFRIN ORIGINAL [Suspect]
     Active Substance: OXYMETAZOLINE HYDROCHLORIDE
     Indication: NASAL MUCOSAL DISORDER

REACTIONS (4)
  - Nasal mucosal erosion [Not Recovered/Not Resolved]
  - Drug dependence [None]
  - Epistaxis [Not Recovered/Not Resolved]
  - Product use issue [None]

NARRATIVE: CASE EVENT DATE: 1982
